FAERS Safety Report 5782245-1 (Version None)
Quarter: 2008Q2

REPORT INFORMATION
  Report Type: 
  Country: None (occurrence: None)
  Receive Date: 20080618
  Receipt Date: 20080603
  Transmission Date: 20081010
  Serious: Yes (Disabling, Other)
  Sender: FDA-Public Use
  Company Number: DSJ-2008-05178

PATIENT
  Age: 72 Year
  Sex: Female

DRUGS (5)
  1. OLMESARTAN MEDOXOMIL [Suspect]
     Indication: HYPERTENSION
     Dosage: 10 MG, PER ORAL; 20 MG, PER ORAL
     Route: 048
     Dates: start: 20071204, end: 20080108
  2. OLMESARTAN MEDOXOMIL [Suspect]
     Indication: HYPERTENSION
     Dosage: 10 MG, PER ORAL; 20 MG, PER ORAL
     Route: 048
     Dates: start: 20080108, end: 20080213
  3. LIVALO (TABLET) [Concomitant]
  4. METHYCOBAL (MECOBALAMIN) (TABLET) (MECOBALAMIN) [Concomitant]
  5. MELBIN (METFORMIN HYDROCHLORIDE) (TABLET) (METFORMIN HYDROCHLORIDE) [Concomitant]

REACTIONS (4)
  - BLOOD PRESSURE DECREASED [None]
  - BLOOD PRESSURE INCREASED [None]
  - OEDEMA [None]
  - SUPRAVENTRICULAR TACHYCARDIA [None]
